FAERS Safety Report 4598723-7 (Version None)
Quarter: 2005Q1

REPORT INFORMATION
  Report Type: 
  Country: None (occurrence: None)
  Receive Date: 20050302
  Receipt Date: 20050214
  Transmission Date: 20050727
  Serious: Yes (Other)
  Sender: FDA-Public Use
  Company Number: 207188

PATIENT
  Age: 32 Year
  Sex: Female

DRUGS (3)
  1. AVONEX [Suspect]
     Indication: MULTIPLE SCLEROSIS
     Dosage: IM
     Route: 030
  2. AVONEX [Suspect]
     Indication: MULTIPLE SCLEROSIS
     Dosage: IM
     Route: 030
     Dates: start: 20040801
  3. NEURONTIN [Concomitant]

REACTIONS (15)
  - ABASIA [None]
  - ABORTION SPONTANEOUS [None]
  - CHILLS [None]
  - COMPLICATION OF PREGNANCY [None]
  - DRUG EXPOSURE DURING PREGNANCY [None]
  - DRY MOUTH [None]
  - ECTOPIC PREGNANCY [None]
  - FEELING ABNORMAL [None]
  - HYPERSENSITIVITY [None]
  - HYPOAESTHESIA [None]
  - INFLUENZA LIKE ILLNESS [None]
  - INSOMNIA [None]
  - MULTIPLE SCLEROSIS RELAPSE [None]
  - MUSCLE TWITCHING [None]
  - PARALYSIS [None]
